FAERS Safety Report 4462564-1 (Version None)
Quarter: 2004Q3

REPORT INFORMATION
  Report Type: 
  Country: None (occurrence: None)
  Receive Date: 20040924
  Receipt Date: 20040908
  Transmission Date: 20050211
  Serious: Yes (Hospitalization)
  Sender: FDA-Public Use
  Company Number: DE-2004-031549

PATIENT
  Age: 41 Year
  Sex: Female

DRUGS (3)
  1. BETAFERON [Suspect]
     Dosage: SUBCUTANEOUS
     Route: 058
     Dates: start: 20040101, end: 20040101
  2. VITAMINS NOS (VITAMINS NOS) [Concomitant]
  3. SELENIUM (SELENIUM) [Concomitant]

REACTIONS (4)
  - INJECTION SITE ERYTHEMA [None]
  - INJECTION SITE INDURATION [None]
  - PALMAR ERYTHEMA [None]
  - PLANTAR ERYTHEMA [None]
